FAERS Safety Report 20753457 (Version 1)
Quarter: 2022Q2

REPORT INFORMATION
  Report Type: Spontaneous
  Country: US (occurrence: None)
  Receive Date: 20220426
  Receipt Date: 20220426
  Transmission Date: 20220721
  Serious: No
  Sender: FDA-Public Use
  Company Number: US-ROCHE-2829635

PATIENT
  Age: 85 Year
  Sex: Male

DRUGS (13)
  1. ESBRIET [Suspect]
     Active Substance: PIRFENIDONE
     Indication: Idiopathic pulmonary fibrosis
     Dosage: ONGOING: HOLD
     Route: 048
     Dates: start: 202103
  2. ESBRIET [Suspect]
     Active Substance: PIRFENIDONE
     Indication: Parkinson^s disease
  3. ESBRIET [Suspect]
     Active Substance: PIRFENIDONE
     Indication: Hallucination
  4. NUPLAZID [Suspect]
     Active Substance: PIMAVANSERIN TARTRATE
     Indication: Hallucination
     Route: 065
     Dates: start: 201908
  5. NUPLAZID [Suspect]
     Active Substance: PIMAVANSERIN TARTRATE
     Indication: Parkinson^s disease
     Route: 065
     Dates: start: 20180301
  6. CRESTOR [Concomitant]
     Active Substance: ROSUVASTATIN CALCIUM
  7. ELIQUIS [Concomitant]
     Active Substance: APIXABAN
  8. FLUTICASONE [Concomitant]
     Active Substance: FLUTICASONE
  9. FLUOXETINE [Concomitant]
     Active Substance: FLUOXETINE HYDROCHLORIDE
  10. COLACE [Concomitant]
     Active Substance: DOCUSATE SODIUM
  11. AMLODIPINE [Concomitant]
     Active Substance: AMLODIPINE BESYLATE
  12. DIGOXIN [Concomitant]
     Active Substance: DIGOXIN
  13. METOPROLOL SUCCINATE [Concomitant]
     Active Substance: METOPROLOL SUCCINATE

REACTIONS (3)
  - Hypertension [Unknown]
  - Peripheral swelling [Unknown]
  - Drug interaction [Unknown]

NARRATIVE: CASE EVENT DATE: 20190101
